FAERS Safety Report 12231689 (Version 1)
Quarter: 2016Q2

REPORT INFORMATION
  Report Type: Spontaneous
  Country: US (occurrence: US)
  Receive Date: 20160401
  Receipt Date: 20160401
  Transmission Date: 20160815
  Serious: Yes (Hospitalization)
  Sender: FDA-Public Use
  Company Number: US-MEDICURE INC.-1050120

PATIENT
  Age: 53 Year
  Sex: Female
  Weight: 93 kg

DRUGS (14)
  1. AGGRASTAT [Suspect]
     Active Substance: TIROFIBAN HYDROCHLORIDE
     Route: 040
     Dates: start: 20140218, end: 20140218
  2. TRICOR [Concomitant]
     Active Substance: FENOFIBRATE
  3. AGGRASTAT [Suspect]
     Active Substance: TIROFIBAN HYDROCHLORIDE
     Indication: ANTIPLATELET THERAPY
     Route: 042
     Dates: start: 20140217, end: 20140217
  4. LIPID LOWERING THERAPY [Concomitant]
  5. ASPIRIN. [Concomitant]
     Active Substance: ASPIRIN
     Dates: start: 20140219
  6. ORAL P2Y12 ANTAGONIST [Concomitant]
     Dates: start: 20140217
  7. HEPARIN [Concomitant]
     Active Substance: HEPARIN SODIUM
     Route: 042
     Dates: start: 20140217
  8. NITRATE [Concomitant]
  9. ASPIRIN. [Concomitant]
     Active Substance: ASPIRIN
     Dates: start: 20140218
  10. ORAL P2Y12 ANTAGONIST [Concomitant]
     Dates: start: 20140219
  11. HEPARIN [Concomitant]
     Active Substance: HEPARIN SODIUM
     Route: 042
     Dates: start: 20140217
  12. BETA-BLOCKER [Concomitant]
     Active Substance: UNSPECIFIED INGREDIENT
  13. ORAL P2Y12 ANTAGONIST [Concomitant]
     Dates: start: 20140218
  14. ACE INHIBITOR [Concomitant]
     Active Substance: UNSPECIFIED INGREDIENT

REACTIONS (1)
  - Hypotension [Recovered/Resolved]

NARRATIVE: CASE EVENT DATE: 20140218
